FAERS Safety Report 11515854 (Version 1)
Quarter: 2015Q3

REPORT INFORMATION
  Report Type: Spontaneous
  Country: GB (occurrence: GB)
  Receive Date: 20150916
  Receipt Date: 20150916
  Transmission Date: 20151125
  Serious: Yes (Other)
  Sender: FDA-Public Use
  Company Number: GB-ACTAVIS-2015-13232

PATIENT
  Age: 67 Year
  Sex: Male
  Weight: 70 kg

DRUGS (14)
  1. GLYCERYL TRINITRATE [Concomitant]
     Active Substance: NITROGLYCERIN
     Indication: PRODUCT USED FOR UNKNOWN INDICATION
     Dosage: 1 DF, PRN
     Route: 055
     Dates: start: 20150102
  2. RANITIDINE [Concomitant]
     Active Substance: RANITIDINE\RANITIDINE HYDROCHLORIDE
     Indication: PRODUCT USED FOR UNKNOWN INDICATION
     Dosage: 1 DF, BID
     Route: 065
     Dates: start: 20150102
  3. SODIUM ALGINATE [Concomitant]
     Active Substance: SODIUM ALGINATE
     Indication: PRODUCT USED FOR UNKNOWN INDICATION
     Dosage: 1 DF, UNK (TAKE 1 OR 2)
     Route: 065
     Dates: start: 20150102
  4. ATORVASTATIN [Concomitant]
     Active Substance: ATORVASTATIN
     Indication: PRODUCT USED FOR UNKNOWN INDICATION
     Dosage: 1 DF, DAILY
     Route: 065
     Dates: start: 20150102
  5. GABAPENTIN. [Concomitant]
     Active Substance: GABAPENTIN
     Indication: PRODUCT USED FOR UNKNOWN INDICATION
     Dosage: 1 DF, TID (CAN BE INCREASED EVERY 3-4 DAYS)
     Route: 065
     Dates: start: 20150519
  6. VOLTAROL                           /00372304/ [Concomitant]
     Indication: PRODUCT USED FOR UNKNOWN INDICATION
     Dosage: 1 DF, TID
     Route: 065
     Dates: start: 20150512, end: 20150526
  7. OMEPRAZOLE. [Concomitant]
     Active Substance: OMEPRAZOLE
     Indication: PRODUCT USED FOR UNKNOWN INDICATION
     Dosage: 1 DF, DAILY
     Route: 065
     Dates: start: 20150427, end: 20150525
  8. ASPIRIN. [Concomitant]
     Active Substance: ASPIRIN
     Indication: PRODUCT USED FOR UNKNOWN INDICATION
     Dosage: 1 DF, DAILY
     Route: 065
     Dates: start: 20150102
  9. RAMIPRIL. [Concomitant]
     Active Substance: RAMIPRIL
     Indication: PRODUCT USED FOR UNKNOWN INDICATION
     Dosage: 1 DF, DAILY
     Route: 065
     Dates: start: 20150102
  10. PANTOPRAZOLE SODIUM. [Suspect]
     Active Substance: PANTOPRAZOLE SODIUM
     Indication: GASTROOESOPHAGEAL REFLUX DISEASE
     Dosage: UNK
     Route: 065
     Dates: start: 20150609
  11. DABIGATRAN ETEXILATE [Concomitant]
     Active Substance: DABIGATRAN ETEXILATE
     Indication: PRODUCT USED FOR UNKNOWN INDICATION
     Dosage: 1 DF, BID
     Route: 065
     Dates: start: 20150416, end: 20150508
  12. SIMETHICONE (DIMETHICONE) [Concomitant]
     Active Substance: DIMETHICONE
     Indication: PRODUCT USED FOR UNKNOWN INDICATION
     Dosage: 1 DF, TID
     Route: 065
     Dates: start: 20150508, end: 20150518
  13. RIVAROXABAN [Concomitant]
     Active Substance: RIVAROXABAN
     Indication: PRODUCT USED FOR UNKNOWN INDICATION
     Dosage: 1 DF, DAILY
     Route: 065
     Dates: start: 20150326, end: 20150508
  14. SOTALOL. [Concomitant]
     Active Substance: SOTALOL
     Indication: PRODUCT USED FOR UNKNOWN INDICATION
     Dosage: 1 DF, BID
     Route: 065
     Dates: start: 20150102

REACTIONS (2)
  - Psychomotor hyperactivity [Recovered/Resolved]
  - Nocturia [Recovered/Resolved]

NARRATIVE: CASE EVENT DATE: 20150609
